FAERS Safety Report 6543522-X (Version None)
Quarter: 2010Q1

REPORT INFORMATION
  Report Type: 
  Country: None (occurrence: None)
  Receive Date: 20100120
  Receipt Date: 20100114
  Transmission Date: 20100710
  Serious: Yes (Life-Threatening, Other)
  Sender: FDA-Public Use
  Company Number: B0626942A

PATIENT
  Sex: Male

DRUGS (2)
  1. AVODART [Suspect]
     Indication: PROSTATIC ADENOMA
     Route: 065
     Dates: start: 20090226, end: 20090830
  2. TAMSULOSIN HCL [Concomitant]
     Indication: PROSTATIC ADENOMA
     Route: 065
     Dates: start: 20090226, end: 20090830

REACTIONS (1)
  - PROSTATE CANCER [None]
